FAERS Safety Report 24881683 (Version 1)
Quarter: 2025Q1

REPORT INFORMATION
  Report Type: Spontaneous
  Country: US (occurrence: US)
  Receive Date: 20250124
  Receipt Date: 20250124
  Transmission Date: 20250408
  Serious: No
  Sender: PADAGIS
  Company Number: US-PADAGIS-2025PAD00033

PATIENT

DRUGS (2)
  1. ESTRADIOL VAGINAL [Suspect]
     Active Substance: ESTRADIOL
     Indication: Urinary tract infection
     Route: 065
     Dates: end: 2018
  2. ESTRADIOL VAGINAL [Suspect]
     Active Substance: ESTRADIOL
     Indication: Atrophic vulvovaginitis

REACTIONS (3)
  - Breast swelling [Unknown]
  - Breast tenderness [Unknown]
  - Product use in unapproved indication [Unknown]

NARRATIVE: CASE EVENT DATE: 20180101
